FAERS Safety Report 13243164 (Version 1)
Quarter: 2017Q1

REPORT INFORMATION
  Report Type: Spontaneous
  Country: US (occurrence: US)
  Receive Date: 20170216
  Receipt Date: 20170216
  Transmission Date: 20170428
  Serious: Yes (Hospitalization, Other)
  Sender: FDA-Public Use
  Company Number: None

PATIENT
  Age: 10 Year
  Sex: Male
  Weight: 74.25 kg

DRUGS (1)
  1. MIRALAX [Suspect]
     Active Substance: POLYETHYLENE GLYCOL 3350
     Indication: CONSTIPATION
     Dosage: ?          QUANTITY:2 POWDER;?
     Route: 048

REACTIONS (5)
  - Phobia [None]
  - Aggression [None]
  - Anxiety [None]
  - Mental status changes [None]
  - Obsessive-compulsive disorder [None]

NARRATIVE: CASE EVENT DATE: 20101008
